FAERS Safety Report 10846536 (Version 2)
Quarter: 2015Q1

REPORT INFORMATION
  Report Type: Report from Study
  Country: BR (occurrence: BR)
  Receive Date: 20150220
  Receipt Date: 20150326
  Transmission Date: 20150721
  Serious: Yes (Hospitalization, Other)
  Sender: FDA-Public Use
  Company Number: BR-GLAXOSMITHKLINE-BR2015GSK015984

PATIENT
  Age: 69 Year
  Sex: Male
  Weight: 95 kg

DRUGS (7)
  1. FLUTICASONE FUROATE + VILANTEROL TRIFENATATE [Suspect]
     Active Substance: FLUTICASONE FUROATE\VILANTEROL TRIFENATATE
     Indication: ASTHMA
     Dosage: 1 PUFF(S), QD
     Dates: end: 20150106
  2. COMBODART [Suspect]
     Active Substance: DUTASTERIDE\TAMSULOSIN
     Indication: PRODUCT USED FOR UNKNOWN INDICATION
     Dosage: 1 UNK, QD
     Route: 048
  3. ATENSINA [Concomitant]
     Active Substance: CLONIDINE
     Indication: BLOOD PRESSURE
     Dosage: 1 UNK, UNK
     Route: 048
  4. NIFELAT [Concomitant]
     Active Substance: ATENOLOL\NIFEDIPINE
     Indication: BLOOD PRESSURE MANAGEMENT
     Dosage: 1 UNK, UNK
     Route: 048
  5. SERETIDE [Suspect]
     Active Substance: FLUTICASONE FUROATE\SALMETEROL XINAFOATE
     Indication: ASTHMA
     Dosage: 1 PUFF(S), QD
  6. BENICAR [Concomitant]
     Active Substance: OLMESARTAN MEDOXOMIL
     Indication: BLOOD PRESSURE
     Dosage: 1 UNK, UNK
     Route: 048
  7. RASILEZ [Concomitant]
     Active Substance: ALISKIREN
     Indication: BLOOD PRESSURE
     Dosage: 1 UNK, UNK
     Route: 048

REACTIONS (5)
  - Tonsillar hypertrophy [Recovering/Resolving]
  - Cough [Recovered/Resolved]
  - Pulmonary embolism [Recovered/Resolved]
  - Insomnia [Recovered/Resolved]
  - Dysphagia [Recovered/Resolved]

NARRATIVE: CASE EVENT DATE: 201410
